FAERS Safety Report 8452962-3 (Version None)
Quarter: 2012Q2

REPORT INFORMATION
  Report Type: 
  Country: None (occurrence: None)
  Receive Date: 20120620
  Receipt Date: 20120619
  Transmission Date: 20120825
  Serious: Yes (Death, Other)
  Sender: FDA-Public Use
  Company Number: PHHY2012GB045384

PATIENT
  Age: 49 Year
  Sex: Male

DRUGS (5)
  1. DULOXETIME HYDROCHLORIDE [Suspect]
     Indication: AGITATED DEPRESSION
     Dosage: 60 MG
     Route: 048
     Dates: start: 20101019
  2. OLANZAPINE [Concomitant]
  3. ZOPICLONE [Concomitant]
  4. CITALOPRAM [Suspect]
     Indication: DEPRESSED MOOD
     Dosage: 20 MG
     Route: 048
     Dates: start: 20101001, end: 20101018
  5. DIAZEPAM [Concomitant]

REACTIONS (2)
  - DEATH [None]
  - SUICIDAL IDEATION [None]
